FAERS Safety Report 15785891 (Version 1)
Quarter: 2019Q1

REPORT INFORMATION
  Report Type: Spontaneous
  Country: CN (occurrence: CN)
  Receive Date: 20190103
  Receipt Date: 20190103
  Transmission Date: 20190417
  Serious: Yes (Other)
  Sender: FDA-Public Use
  Company Number: CN-BAYER-2019-000483

PATIENT
  Age: 67 Year
  Sex: Female
  Weight: 45 kg

DRUGS (1)
  1. BAYASPIRIN 100 MG [Suspect]
     Active Substance: ASPIRIN
     Indication: CARDIAC DISORDER
     Dosage: 100 MG, QD
     Route: 048
     Dates: start: 20180910, end: 20181020

REACTIONS (2)
  - Gastrooesophageal reflux disease [Recovering/Resolving]
  - Upper gastrointestinal haemorrhage [Recovering/Resolving]

NARRATIVE: CASE EVENT DATE: 20180920
